FAERS Safety Report 8247810-0 (Version None)
Quarter: 2012Q1

REPORT INFORMATION
  Report Type: 
  Country: None (occurrence: None)
  Receive Date: 20120330
  Receipt Date: 20120323
  Transmission Date: 20120608
  Serious: Yes (Hospitalization)
  Sender: FDA-Public Use
  Company Number: US-BAYER-2012-029237

PATIENT
  Age: 18 Year
  Sex: Female
  Weight: 95.238 kg

DRUGS (12)
  1. AVELOX [Concomitant]
     Dosage: 400 MG, QD
     Dates: start: 20040726
  2. ZITHROMAX [Concomitant]
     Dosage: UNK
     Dates: start: 20040518
  3. YASMIN [Suspect]
     Route: 048
  4. ATUSS DR [Concomitant]
  5. ERYTHROMYCIN-BENZO [Concomitant]
     Dosage: 23.3 G, UNK
     Dates: start: 20040607
  6. PHENERGAN [Concomitant]
     Indication: NAUSEA
     Route: 042
  7. PERCOCET [Concomitant]
     Indication: PAIN
     Dosage: 5/325 EVERY 6 HOURS AS NEEDED
     Dates: start: 20040726
  8. PHENERGAN [Concomitant]
     Indication: VOMITING
  9. LEVAQUIN [Concomitant]
     Dosage: 500 MG, UNK
  10. CEDAX [Concomitant]
     Dosage: 400 MG, UNK
     Route: 048
     Dates: start: 20040607
  11. DERMATOP [Concomitant]
     Dosage: 0.1 %, UNK
     Dates: start: 20040518
  12. LODRANE 12D [Concomitant]
     Dosage: UNK
     Dates: start: 20040607

REACTIONS (1)
  - PULMONARY EMBOLISM [None]
